FAERS Safety Report 18300395 (Version 1)
Quarter: 2020Q3

REPORT INFORMATION
  Report Type: Spontaneous
  Country: US (occurrence: US)
  Receive Date: 20200922
  Receipt Date: 20200922
  Transmission Date: 20201103
  Serious: Yes (Other)
  Sender: FDA-Public Use
  Company Number: None

PATIENT
  Age: 57 Year
  Sex: Female

DRUGS (3)
  1. VITAMIN B12 [Concomitant]
     Active Substance: CYANOCOBALAMIN
  2. AJOVY [Suspect]
     Active Substance: FREMANEZUMAB-VFRM
     Indication: MIGRAINE
     Dates: start: 20200828
  3. OMEPRZOLE [Concomitant]
     Active Substance: OMEPRAZOLE

REACTIONS (1)
  - Hypersensitivity [None]

NARRATIVE: CASE EVENT DATE: 20200828
